FAERS Safety Report 7421003-9 (Version None)
Quarter: 2011Q2

REPORT INFORMATION
  Report Type: 
  Country: None (occurrence: None)
  Receive Date: 20110418
  Receipt Date: 20110408
  Transmission Date: 20111010
  Serious: Yes (Hospitalization, Other)
  Sender: FDA-Public Use
  Company Number: PHHY2011JP26619

PATIENT
  Age: 73 Year
  Sex: Male
  Weight: 62.7 kg

DRUGS (12)
  1. PREDNISOLONE [Concomitant]
     Route: 048
  2. ALFAROL [Concomitant]
  3. ASPARA [Concomitant]
     Route: 048
  4. SALMETEROL XINAFOATE [Concomitant]
  5. CEFTRIAXONE SODIUM [Suspect]
     Indication: EXTRADURAL ABSCESS
     Dosage: 4 G, DAILY
     Dates: start: 20101213, end: 20110315
  6. CALCIUM CARBONATE [Concomitant]
  7. AMIKACIN SULFATE [Suspect]
     Indication: WOUND TREATMENT
     Dosage: UNK
     Dates: start: 20110120, end: 20110308
  8. HERBESSER [Concomitant]
     Route: 048
  9. TAKEPRON [Concomitant]
  10. FLUTICASONE PROPIONATE [Concomitant]
  11. CEFTRIAXONE SODIUM [Suspect]
     Indication: INTRASPINAL ABSCESS
  12. NEUTROGIN [Concomitant]

REACTIONS (7)
  - DRUG ERUPTION [None]
  - SPONDYLITIS [None]
  - GRANULOCYTOPENIA [None]
  - NEUTROPHIL COUNT DECREASED [None]
  - WHITE BLOOD CELL COUNT DECREASED [None]
  - ERYTHEMA [None]
  - GRANULOCYTE COUNT DECREASED [None]
